FAERS Safety Report 5886626-7 (Version None)
Quarter: 2008Q3

REPORT INFORMATION
  Report Type: 
  Country: None (occurrence: None)
  Receive Date: 20080917
  Receipt Date: 20080908
  Transmission Date: 20090109
  Serious: Yes (Other)
  Sender: FDA-Public Use
  Company Number: PHHY2008KR14038

PATIENT
  Sex: Female

DRUGS (2)
  1. ZOLEDRONATE T29581+SOLINF [Suspect]
     Indication: MULTIPLE MYELOMA
     Dosage: 4 MG, EVERY 4 WEEKS
     Dates: start: 20070328
  2. ZOLEDRONATE T29581+SOLINF [Suspect]
     Indication: METASTASES TO BONE

REACTIONS (1)
  - CONDITION AGGRAVATED [None]
